FAERS Safety Report 9476533 (Version 1)
Quarter: 2013Q3

REPORT INFORMATION
  Report Type: Spontaneous
  Country: IT (occurrence: IT)
  Receive Date: 20130826
  Receipt Date: 20130826
  Transmission Date: 20140515
  Serious: Yes (Life-Threatening, Other)
  Sender: FDA-Public Use
  Company Number: IT-ABBOTT-13P-083-1137344-00

PATIENT
  Age: 54 Year
  Sex: Male
  Weight: 58 kg

DRUGS (2)
  1. KALETRA 200/50 [Suspect]
     Indication: RETROVIRAL INFECTION
     Route: 048
     Dates: start: 20130313, end: 20130809
  2. ISENTRESS [Suspect]
     Indication: RETROVIRAL INFECTION
     Route: 048
     Dates: start: 20130313, end: 20130809

REACTIONS (3)
  - Adams-Stokes syndrome [Recovered/Resolved]
  - Fall [Unknown]
  - Head injury [Unknown]
